FAERS Safety Report 18530122 (Version 1)
Quarter: 2020Q4

REPORT INFORMATION
  Report Type: Spontaneous
  Country: IE (occurrence: IE)
  Receive Date: 20201120
  Receipt Date: 20201120
  Transmission Date: 20210114
  Serious: Yes (Life-Threatening, Hospitalization, Other)
  Sender: FDA-Public Use
  Company Number: IE-VERTEX PHARMACEUTICALS-2020-022809

PATIENT
  Age: 43 Year
  Sex: Female

DRUGS (1)
  1. KALYDECO [Suspect]
     Active Substance: IVACAFTOR
     Indication: CYSTIC FIBROSIS
     Dosage: UNK
     Route: 048
     Dates: start: 2013

REACTIONS (3)
  - Infective pulmonary exacerbation of cystic fibrosis [Recovering/Resolving]
  - Acute respiratory distress syndrome [Unknown]
  - COVID-19 [Unknown]

NARRATIVE: CASE EVENT DATE: 2019
